FAERS Safety Report 6923260-1 (Version None)
Quarter: 2010Q3

REPORT INFORMATION
  Report Type: 
  Country: None (occurrence: None)
  Receive Date: 20100813
  Receipt Date: 20100802
  Transmission Date: 20110219
  Serious: Yes (Hospitalization, Other)
  Sender: FDA-Public Use
  Company Number: US-SANOFI-AVENTIS-2009SA008501

PATIENT
  Age: 29 Year
  Sex: Male

DRUGS (5)
  1. DDAVP [Suspect]
     Route: 045
     Dates: start: 20061101
  2. CLARITIN [Concomitant]
  3. DIURETICS [Concomitant]
  4. ZOMIG [Concomitant]
     Dosage: QID /PRN UP TO A MAX OF 4 DOSES/DAY
     Route: 048
     Dates: start: 20071106
  5. DITROPAN [Concomitant]

REACTIONS (22)
  - AMNESIA [None]
  - CHILLS [None]
  - CONVULSION [None]
  - DISORIENTATION [None]
  - DISTURBANCE IN ATTENTION [None]
  - EYE INFECTION [None]
  - FLUSHING [None]
  - GASTRITIS [None]
  - HORDEOLUM [None]
  - HYPOKALAEMIA [None]
  - HYPOMAGNESAEMIA [None]
  - HYPONATRAEMIA [None]
  - LOSS OF CONSCIOUSNESS [None]
  - MIGRAINE [None]
  - NASAL CONGESTION [None]
  - NAUSEA [None]
  - PAIN [None]
  - RHINITIS ALLERGIC [None]
  - SENSORY LOSS [None]
  - THIRST [None]
  - THROMBOPHLEBITIS [None]
  - TREMOR [None]
